FAERS Safety Report 7378130-4 (Version None)
Quarter: 2011Q1

REPORT INFORMATION
  Report Type: 
  Country: None (occurrence: None)
  Receive Date: 20110328
  Receipt Date: 20110322
  Transmission Date: 20110831
  Serious: Yes (Hospitalization, Other)
  Sender: FDA-Public Use
  Company Number: CA-ABBOTT-11P-028-0711012-00

PATIENT
  Sex: Female
  Weight: 91.708 kg

DRUGS (3)
  1. SEROQUEL [Concomitant]
     Indication: AFFECTIVE DISORDER
     Route: 048
     Dates: start: 20110211
  2. HUMIRA [Suspect]
     Indication: CROHN'S DISEASE
     Route: 058
     Dates: start: 20100406, end: 20110101
  3. HUMIRA [Suspect]
     Route: 058
     Dates: start: 20110307

REACTIONS (13)
  - PYREXIA [None]
  - TREATMENT FAILURE [None]
  - CONDITION AGGRAVATED [None]
  - SINUSITIS [None]
  - CLOSTRIDIAL INFECTION [None]
  - BRONCHITIS [None]
  - PHARYNGITIS [None]
  - NASOPHARYNGITIS [None]
  - NASAL SEPTUM DISORDER [None]
  - LARYNGITIS [None]
  - ABDOMINAL PAIN UPPER [None]
  - CROHN'S DISEASE [None]
  - PNEUMONIA [None]
